FAERS Safety Report 14235356 (Version 1)
Quarter: 2017Q4

REPORT INFORMATION
  Report Type: Spontaneous
  Country: TN (occurrence: TN)
  Receive Date: 20171129
  Receipt Date: 20171129
  Transmission Date: 20180321
  Serious: Yes (Other)
  Sender: FDA-Public Use
  Company Number: TN-GE HEALTHCARE LIFE SCIENCES-2017CSU003899

PATIENT

DRUGS (1)
  1. GADOLINIUM (UNSPECIFIED) [Suspect]
     Active Substance: GADOLINIUM
     Indication: ARTERIOVENOUS FISTULA
     Dosage: UNK, SINGLE
     Route: 065

REACTIONS (1)
  - Nephrogenic systemic fibrosis [Unknown]
